FAERS Safety Report 20778356 (Version 3)
Quarter: 2022Q3

REPORT INFORMATION
  Report Type: Spontaneous
  Country: US (occurrence: US)
  Receive Date: 20220503
  Receipt Date: 20220921
  Transmission Date: 20221027
  Serious: No
  Sender: FDA-Public Use
  Company Number: US-PFIZER INC-202200574937

PATIENT
  Age: 70 Year
  Sex: Female

DRUGS (6)
  1. IBRANCE [Suspect]
     Active Substance: PALBOCICLIB
     Dosage: 125 MG, CYCLIC (EVERY DAY ON DAYS 1 THROUGH 21 THEN 7 DAYS OFF)
     Route: 048
  2. EXEMESTANE [Concomitant]
     Active Substance: EXEMESTANE
  3. LISINOPRIL [Concomitant]
     Active Substance: LISINOPRIL
  4. HERBALS\TURMERIC [Concomitant]
     Active Substance: HERBALS\TURMERIC
     Dosage: UNK
  5. Ultra Mega Vitamin [Concomitant]
     Dosage: UNK
  6. GLUCOSAMIN + CHONDROITIN [Concomitant]

REACTIONS (5)
  - Vomiting [Unknown]
  - Diarrhoea [Unknown]
  - Blood pressure increased [Unknown]
  - Nausea [Unknown]
  - Dizziness [Unknown]
